FAERS Safety Report 7099746-9 (Version None)
Quarter: 2010Q4

REPORT INFORMATION
  Report Type: 
  Country: None (occurrence: None)
  Receive Date: 20101112
  Receipt Date: 20101106
  Transmission Date: 20110411
  Serious: Yes (Hospitalization)
  Sender: FDA-Public Use
  Company Number: US-ABBOTT-10P-163-0683932-00

PATIENT
  Sex: Male
  Weight: 102.15 kg

DRUGS (5)
  1. TRILIPIX [Suspect]
     Indication: BLOOD TRIGLYCERIDES INCREASED
     Dates: start: 20091201
  2. LIPITOR [Concomitant]
     Indication: BLOOD CHOLESTEROL INCREASED
     Dates: start: 20000101
  3. FISH OIL [Concomitant]
     Indication: SUPPLEMENTATION THERAPY
  4. COENZYME Q10 [Concomitant]
     Indication: VITAMIN SUPPLEMENTATION
  5. VITAMIN E [Concomitant]
     Indication: PROMOTION OF WOUND HEALING

REACTIONS (2)
  - ASTHENIA [None]
  - PULMONARY EMBOLISM [None]
